FAERS Safety Report 18596752 (Version 2)
Quarter: 2020Q4

REPORT INFORMATION
  Report Type: Spontaneous
  Country: AR (occurrence: AR)
  Receive Date: 20201209
  Receipt Date: 20201223
  Transmission Date: 20210114
  Serious: Yes (Other)
  Sender: FDA-Public Use
  Company Number: AR-MYLANLABS-2020M1100168

PATIENT
  Age: 41 Year
  Sex: Female

DRUGS (3)
  1. DIVALPRO [Concomitant]
     Dosage: UNK
  2. LAPENAX [Suspect]
     Active Substance: CLOZAPINE
     Indication: SCHIZOPHRENIA
     Dosage: UNK
     Dates: start: 20190603, end: 20201216
  3. LAPENAX [Suspect]
     Active Substance: CLOZAPINE
     Dosage: 300 MG PER DAY

REACTIONS (10)
  - Mean cell haemoglobin decreased [Not Recovered/Not Resolved]
  - Red blood cell count decreased [Recovering/Resolving]
  - Haemoglobin decreased [Recovering/Resolving]
  - Anisocytosis [Unknown]
  - Neutropenia [Not Recovered/Not Resolved]
  - Lymphocyte count increased [Not Recovered/Not Resolved]
  - Eosinophil count increased [Not Recovered/Not Resolved]
  - Mean cell volume decreased [Recovering/Resolving]
  - Leukopenia [Not Recovered/Not Resolved]
  - Haematocrit decreased [Recovering/Resolving]

NARRATIVE: CASE EVENT DATE: 20201201
